FAERS Safety Report 6714458-6 (Version None)
Quarter: 2010Q2

REPORT INFORMATION
  Report Type: 
  Country: None (occurrence: None)
  Receive Date: 20100506
  Receipt Date: 20100428
  Transmission Date: 20101027
  Serious: Yes (Death, Hospitalization)
  Sender: FDA-Public Use
  Company Number: JP-MERCK-1004USA00546

PATIENT
  Age: 78 Year
  Sex: Male

DRUGS (5)
  1. JANUVIA [Suspect]
     Indication: DIABETES MELLITUS
     Route: 048
     Dates: start: 20100106, end: 20100322
  2. AMARYL [Suspect]
     Indication: DIABETES MELLITUS
     Route: 048
     Dates: start: 20091125, end: 20100322
  3. AMARYL [Suspect]
     Route: 048
     Dates: start: 20061017, end: 20091124
  4. ACTOS [Suspect]
     Indication: DIABETES MELLITUS
     Route: 048
     Dates: start: 20051001, end: 20100322
  5. LEUPROLIDE ACETATE [Concomitant]
     Route: 058
     Dates: start: 20100301

REACTIONS (2)
  - HYPOGLYCAEMIA [None]
  - PNEUMONIA [None]
